FAERS Safety Report 12851956 (Version 1)
Quarter: 2016Q4

REPORT INFORMATION
  Report Type: Spontaneous
  Country: US (occurrence: US)
  Receive Date: 20161014
  Receipt Date: 20161014
  Transmission Date: 20170207
  Serious: Yes (Disabling, Other)
  Sender: FDA-Public Use
  Company Number: None

PATIENT
  Age: 41 Year
  Sex: Female
  Weight: 48.15 kg

DRUGS (5)
  1. CLINDRAMYOCIN [Concomitant]
  2. DEPAKOTE [Concomitant]
     Active Substance: DIVALPROEX SODIUM
  3. PREDNISONE. [Concomitant]
     Active Substance: PREDNISONE
  4. ONABOTULINUMTOXIN A [Suspect]
     Active Substance: ONABOTULINUMTOXINA
     Indication: MIGRAINE
  5. OXYGEN. [Concomitant]
     Active Substance: OXYGEN

REACTIONS (16)
  - Pyrexia [None]
  - Nasopharyngitis [None]
  - Hypersensitivity [None]
  - Chills [None]
  - Musculoskeletal stiffness [None]
  - Streptococcal infection [None]
  - Myalgia [None]
  - Feeling abnormal [None]
  - Abdominal pain upper [None]
  - Oropharyngeal pain [None]
  - Mobility decreased [None]
  - Pruritus generalised [None]
  - Pain [None]
  - Lymphoedema [None]
  - Dizziness [None]
  - Pharyngeal oedema [None]

NARRATIVE: CASE EVENT DATE: 20161005
